FAERS Safety Report 9628681 (Version 1)
Quarter: 2013Q4

REPORT INFORMATION
  Report Type: Spontaneous
  Country: JP (occurrence: JP)
  Receive Date: 20131017
  Receipt Date: 20131017
  Transmission Date: 20140711
  Serious: Yes (Disabling)
  Sender: FDA-Public Use
  Company Number: JP-MYLANLABS-2013S1022439

PATIENT
  Age: 8 Decade
  Sex: Female

DRUGS (1)
  1. DONEPEZIL [Suspect]
     Indication: DEMENTIA ALZHEIMER^S TYPE
     Dosage: 5MG
     Route: 065

REACTIONS (2)
  - Torticollis [Recovering/Resolving]
  - Activities of daily living impaired [Unknown]
